FAERS Safety Report 18036060 (Version 2)
Quarter: 2021Q2

REPORT INFORMATION
  Report Type: Spontaneous
  Country: CN (occurrence: CN)
  Receive Date: 20200717
  Receipt Date: 20210528
  Transmission Date: 20210717
  Serious: Yes (Other)
  Sender: FDA-Public Use
  Company Number: CN-ROCHE-2642631

PATIENT
  Age: 45 Year
  Sex: Male
  Weight: 71.6 kg

DRUGS (15)
  1. MABTHERA [Suspect]
     Active Substance: RITUXIMAB
     Indication: DIFFUSE LARGE B-CELL LYMPHOMA
     Dosage: ON 09/APR/2020 AND 08/MAY/2020, R?CHOP REGIMEN FOR 2 CYCLES
     Route: 065
     Dates: start: 20200409
  2. MABTHERA [Suspect]
     Active Substance: RITUXIMAB
     Dosage: R?HOP REGIMEN
     Route: 065
     Dates: start: 20200602
  3. MABTHERA [Suspect]
     Active Substance: RITUXIMAB
     Dosage: R?CHOP REGIMEN
     Route: 065
     Dates: start: 20200625
  4. CYCLOPHOSPHAMIDE. [Concomitant]
     Active Substance: CYCLOPHOSPHAMIDE
     Indication: DIFFUSE LARGE B-CELL LYMPHOMA
     Dosage: ON 09/APR/2020 AND 08/MAY/2020, R?CHOP REGIMEN FOR 2 CYCLES
     Route: 065
     Dates: start: 20200409
  5. VINCRISTINE [Concomitant]
     Active Substance: VINCRISTINE
     Indication: DIFFUSE LARGE B-CELL LYMPHOMA
     Dosage: ON 09/APR/2020 AND 08/MAY/2020, R?CHOP REGIMEN FOR 2 CYCLES
     Route: 065
     Dates: start: 20200409
  6. VINCRISTINE [Concomitant]
     Active Substance: VINCRISTINE
     Dosage: R?CHOP REGIMEN
     Route: 065
     Dates: start: 20200625
  7. ENTECAVIR. [Concomitant]
     Active Substance: ENTECAVIR
     Indication: HEPATITIS B
     Route: 048
  8. DOXORUBICIN [Concomitant]
     Active Substance: DOXORUBICIN
     Dosage: R?CHOP REGIMEN
     Route: 065
     Dates: start: 20200625
  9. CYCLOPHOSPHAMIDE. [Concomitant]
     Active Substance: CYCLOPHOSPHAMIDE
     Dosage: R?CHOP REGIMEN
     Route: 065
     Dates: start: 20200625
  10. DOXORUBICIN [Concomitant]
     Active Substance: DOXORUBICIN
     Indication: DIFFUSE LARGE B-CELL LYMPHOMA
     Dosage: ON 09/APR/2020 AND 08/MAY/2020, R?CHOP REGIMEN FOR 2 CYCLES
     Route: 065
     Dates: start: 20200409
  11. DOXORUBICIN [Concomitant]
     Active Substance: DOXORUBICIN
     Dosage: R?HOP REGIMEN
     Route: 065
     Dates: start: 20200602
  12. PREDNISONE. [Concomitant]
     Active Substance: PREDNISONE
     Indication: DIFFUSE LARGE B-CELL LYMPHOMA
     Dosage: ON 09/APR/2020 AND 08/MAY/2020, R?CHOP REGIMEN FOR 2 CYCLES
     Route: 065
     Dates: start: 20200409
  13. PREDNISONE. [Concomitant]
     Active Substance: PREDNISONE
     Dosage: R?CHOP REGIMEN
     Route: 065
     Dates: start: 20200625
  14. PREDNISONE. [Concomitant]
     Active Substance: PREDNISONE
     Dosage: R?HOP REGIMEN
     Route: 065
     Dates: start: 20200602
  15. VINCRISTINE [Concomitant]
     Active Substance: VINCRISTINE
     Dosage: R?HOP REGIMEN
     Route: 065
     Dates: start: 20200602

REACTIONS (2)
  - Pancreatitis relapsing [Unknown]
  - Pneumonia [Unknown]
